FAERS Safety Report 9475510 (Version 1)
Quarter: 2013Q3

REPORT INFORMATION
  Report Type: Spontaneous
  Country: GB (occurrence: GB)
  Receive Date: 20130826
  Receipt Date: 20130826
  Transmission Date: 20140515
  Serious: Yes (Disabling)
  Sender: FDA-Public Use
  Company Number: GB-BRISTOL-MYERS SQUIBB COMPANY-19207562

PATIENT
  Age: 54 Year
  Sex: Male
  Weight: 100.6 kg

DRUGS (8)
  1. BYDUREON [Suspect]
  2. LANSOPRAZOLE [Concomitant]
     Dates: start: 20130320, end: 20130603
  3. METFORMIN [Concomitant]
     Dates: start: 20130320, end: 20130522
  4. PRAVASTATIN SODIUM [Concomitant]
     Dates: start: 20130403, end: 20130603
  5. ASPIRIN [Concomitant]
     Dates: start: 20130403, end: 20130603
  6. EZETIMIBE [Concomitant]
     Dates: start: 20130403, end: 20130603
  7. PRAMIPEXOLE HCL [Concomitant]
     Dates: start: 20130515, end: 20130614
  8. DEPO-MEDRONE [Concomitant]
     Dates: start: 20130528, end: 20130529

REACTIONS (1)
  - Pancreatitis [Recovered/Resolved]
